FAERS Safety Report 16969396 (Version 1)
Quarter: 2019Q4

REPORT INFORMATION
  Report Type: Spontaneous
  Country: US (occurrence: US)
  Receive Date: 20191029
  Receipt Date: 20191029
  Transmission Date: 20200122
  Serious: Yes (Hospitalization, Other)
  Sender: FDA-Public Use
  Company Number: US-GW PHARMA-201910USGW3936

PATIENT

DRUGS (1)
  1. EPIDIOLEX [Suspect]
     Active Substance: CANNABIDIOL
     Indication: LENNOX-GASTAUT SYNDROME
     Dosage: 55 MILLIGRAM, BID
     Route: 048
     Dates: start: 20190906, end: 20190906

REACTIONS (7)
  - Petit mal epilepsy [Unknown]
  - Atonic seizures [Recovered/Resolved]
  - Seizure cluster [Unknown]
  - Insomnia [Unknown]
  - Seizure [Recovered/Resolved]
  - Petit mal epilepsy [Recovered/Resolved]
  - Status epilepticus [Unknown]

NARRATIVE: CASE EVENT DATE: 201909
